FAERS Safety Report 13465692 (Version 1)
Quarter: 2017Q2

REPORT INFORMATION
  Report Type: Report from Study
  Country: CA (occurrence: CA)
  Receive Date: 20170421
  Receipt Date: 20170421
  Transmission Date: 20170830
  Serious: Yes (Death)
  Sender: FDA-Public Use
  Company Number: CA-BEH-2017079720

PATIENT
  Sex: Male

DRUGS (1)
  1. HIZENTRA [Suspect]
     Active Substance: HUMAN IMMUNOGLOBULIN G
     Indication: MYASTHENIA GRAVIS
     Dosage: SUBCUTANEOUS PUMP
     Route: 058

REACTIONS (6)
  - Ill-defined disorder [Unknown]
  - Pain [Unknown]
  - Infusion site laceration [Unknown]
  - Fall [Unknown]
  - Death [Fatal]
  - Asthenia [Unknown]
